FAERS Safety Report 5652497-7 (Version None)
Quarter: 2008Q1

REPORT INFORMATION
  Report Type: 
  Country: None (occurrence: None)
  Receive Date: 20080306
  Receipt Date: 20080227
  Transmission Date: 20080703
  Serious: Yes (Other)
  Sender: FDA-Public Use
  Company Number: US-JNJFOC-20080300048

PATIENT
  Sex: Male
  Weight: 139.26 kg

DRUGS (2)
  1. DURAGESIC-100 [Suspect]
     Indication: ARTHRALGIA
     Route: 062
  2. PLAQUENIL [Suspect]
     Indication: ARTHRITIS
     Route: 065

REACTIONS (4)
  - ANOREXIA [None]
  - APPLICATION SITE PRURITUS [None]
  - HEPATOCELLULAR INJURY [None]
  - WEIGHT DECREASED [None]
